FAERS Safety Report 9314170 (Version 1)
Quarter: 2013Q2

REPORT INFORMATION
  Report Type: Spontaneous
  Country: IT (occurrence: IT)
  Receive Date: 20130529
  Receipt Date: 20130529
  Transmission Date: 20140414
  Serious: Yes (Other)
  Sender: FDA-Public Use
  Company Number: IT-JNJFOC-20130510882

PATIENT
  Age: 51 Year
  Sex: Male
  Weight: 65 kg

DRUGS (6)
  1. HALDOL [Suspect]
     Indication: PRODUCT USED FOR UNKNOWN INDICATION
     Route: 048
  2. HALDOL [Suspect]
     Indication: PRODUCT USED FOR UNKNOWN INDICATION
     Route: 048
     Dates: start: 20130516, end: 20130516
  3. ZIMOX [Suspect]
     Indication: INTENTIONAL SELF-INJURY
     Route: 065
     Dates: start: 20130516, end: 20130516
  4. PAROXETINE MESILATE [Suspect]
     Indication: INTENTIONAL SELF-INJURY
     Route: 048
     Dates: start: 20130516, end: 20130516
  5. DISSENTEN [Suspect]
     Indication: INTENTIONAL SELF-INJURY
     Route: 065
     Dates: start: 20130516, end: 20130516
  6. PARACETAMOL [Suspect]
     Indication: INTENTIONAL SELF-INJURY
     Route: 048
     Dates: start: 20130516, end: 20130516

REACTIONS (2)
  - Self injurious behaviour [Unknown]
  - Intentional overdose [Unknown]
